FAERS Safety Report 14378257 (Version 4)
Quarter: 2018Q2

REPORT INFORMATION
  Report Type: Spontaneous
  Country: US (occurrence: US)
  Receive Date: 20180111
  Receipt Date: 20180502
  Transmission Date: 20180711
  Serious: Yes (Death, Hospitalization, Congenital Anomaly)
  Sender: FDA-Public Use
  Company Number: US-ACTELION-A-NJ2018-165549

PATIENT
  Age: 5 Month
  Sex: Female
  Weight: 3.63 kg

DRUGS (7)
  1. TRACLEER [Suspect]
     Active Substance: BOSENTAN
     Indication: PULMONARY ARTERIAL HYPERTENSION
     Dosage: 8 MG, BID
     Route: 048
     Dates: start: 20171215, end: 20180406
  2. TRACLEER [Suspect]
     Active Substance: BOSENTAN
     Dosage: 7.5 MG, BID
     Route: 048
  3. ENOXAPARIN [Concomitant]
     Active Substance: ENOXAPARIN
     Dosage: 5 MG, BID
     Route: 058
     Dates: end: 20180406
  4. LASIX [Concomitant]
     Active Substance: FUROSEMIDE
     Dosage: 4 MG, BID
     Dates: end: 20180406
  5. LANSOPRAZOLE. [Concomitant]
     Active Substance: LANSOPRAZOLE
     Dosage: 15 MG, QD
     Dates: end: 20180406
  6. REVATIO [Concomitant]
     Active Substance: SILDENAFIL CITRATE
     Dosage: 5 MG, TID
     Dates: end: 20180406
  7. GABAPENTIN. [Concomitant]
     Active Substance: GABAPENTIN
     Dosage: 25 MG, Q8H
     Dates: end: 20180406

REACTIONS (7)
  - Congenital anomaly [Unknown]
  - Unevaluable event [Unknown]
  - Pyrexia [Unknown]
  - Cardio-respiratory arrest [Fatal]
  - Concomitant disease progression [Unknown]
  - Rhinorrhoea [Unknown]
  - Failure to thrive [Recovering/Resolving]

NARRATIVE: CASE EVENT DATE: 20180406
